FAERS Safety Report 16625086 (Version 1)
Quarter: 2019Q3

REPORT INFORMATION
  Report Type: Spontaneous
  Country: US (occurrence: US)
  Receive Date: 20190611
  Receipt Date: 20190611
  Transmission Date: 20191004
  Serious: Yes (Hospitalization)
  Sender: FDA-Public Use
  Company Number: None

PATIENT
  Age: 87 Year
  Sex: Female

DRUGS (10)
  1. P [Concomitant]
  2. TOVIAZ [Concomitant]
     Active Substance: FESOTERODINE FUMARATE
  3. FEROSUL [Concomitant]
  4. LOSARTAN POT [Concomitant]
     Active Substance: LOSARTAN POTASSIUM
  5. METOPROLOL SUCRALFATE [Concomitant]
  6. ASPIRIN. [Concomitant]
     Active Substance: ASPIRIN
  7. TORSEMIDE. [Concomitant]
     Active Substance: TORSEMIDE
  8. WARFARIN [Concomitant]
     Active Substance: WARFARIN
  9. DULOXETINE. [Concomitant]
     Active Substance: DULOXETINE
  10. SILDENAFIL. [Suspect]
     Active Substance: SILDENAFIL
     Indication: PULMONARY ARTERIAL HYPERTENSION
     Route: 048

REACTIONS (1)
  - Dyspnoea [None]

NARRATIVE: CASE EVENT DATE: 20190604
